FAERS Safety Report 12607402 (Version 1)
Quarter: 2016Q3

REPORT INFORMATION
  Report Type: Spontaneous
  Country: ZA (occurrence: ZA)
  Receive Date: 20160729
  Receipt Date: 20160729
  Transmission Date: 20161109
  Serious: Yes (Other)
  Sender: FDA-Public Use
  Company Number: ZA-MYLANLABS-2014M1005294

PATIENT

DRUGS (1)
  1. EFAVIRENZ/EMTRICITABINE/TENOFOVIR DISOPROXIL FUMARATE [Suspect]
     Active Substance: EFAVIRENZ\EMTRICITABINE\TENOFOVIR DISOPROXIL FUMARATE
     Dosage: ONCE DAILY
     Route: 065

REACTIONS (6)
  - Hepatitis [Unknown]
  - Palmar erythema [None]
  - Pyrexia [Unknown]
  - Photosensitivity reaction [None]
  - Erythema annulare [None]
  - Skin reaction [Unknown]
